FAERS Safety Report 8524997-3 (Version None)
Quarter: 2012Q3

REPORT INFORMATION
  Report Type: 
  Country: None (occurrence: None)
  Receive Date: 20120720
  Receipt Date: 20120718
  Transmission Date: 20120928
  Serious: Yes (Hospitalization, Other)
  Sender: FDA-Public Use
  Company Number: CN-ROCHE-1084672

PATIENT
  Sex: Male

DRUGS (4)
  1. PEGASYS [Suspect]
     Indication: HEPATITIS B
     Route: 058
     Dates: start: 20120121, end: 20120511
  2. CHINESE PATENT MEDICINE (UNK INGREDIENTS) [Concomitant]
     Indication: HEPATITIS B
     Route: 048
     Dates: start: 20120121
  3. THYMOPEPTIDE [Concomitant]
     Indication: HEPATITIS B
  4. GLYCYRRHIZIN [Concomitant]
     Indication: HEPATITIS B
     Route: 048
     Dates: start: 20120121

REACTIONS (7)
  - SPLENOMEGALY [None]
  - PLATELET COUNT DECREASED [None]
  - NEUTROPHIL COUNT DECREASED [None]
  - PORTAL HYPERTENSION [None]
  - GASTRITIS HAEMORRHAGIC [None]
  - HEPATIC CYST [None]
  - WHITE BLOOD CELL COUNT DECREASED [None]
